FAERS Safety Report 6638818-7 (Version None)
Quarter: 2010Q1

REPORT INFORMATION
  Report Type: 
  Country: None (occurrence: None)
  Receive Date: 20100317
  Receipt Date: 20100308
  Transmission Date: 20100710
  Serious: Yes (Other)
  Sender: FDA-Public Use
  Company Number: US-JNJFOC-20100304441

PATIENT
  Age: 79 Year
  Sex: Female

DRUGS (4)
  1. GALANTAMINE HYDROBROMIDE [Suspect]
     Indication: DEMENTIA ALZHEIMER'S TYPE
     Route: 065
  2. MULTI-VITAMINS [Concomitant]
     Route: 065
  3. ACETAMINOPHEN [Concomitant]
     Indication: OSTEOARTHRITIS
  4. METOPROLOL TARTRATE [Concomitant]
     Indication: HYPERTENSION

REACTIONS (1)
  - PEMPHIGOID [None]
